FAERS Safety Report 4637619-9 (Version None)
Quarter: 2005Q2

REPORT INFORMATION
  Report Type: 
  Country: None (occurrence: None)
  Receive Date: 20050325
  Receipt Date: 20041124
  Transmission Date: 20051028
  Serious: No
  Sender: FDA-Public Use
  Company Number: USA041184565

PATIENT
  Age: 46 Year
  Sex: Female
  Weight: 59 kg

DRUGS (2)
  1. FORTEO [Suspect]
     Dosage: 20 UG/1 IN THE EVENING
     Dates: start: 20040901
  2. CALCIUM GLUCONATE [Concomitant]

REACTIONS (7)
  - CONSTIPATION [None]
  - EYE SWELLING [None]
  - INJECTION SITE HAEMORRHAGE [None]
  - INJECTION SITE PAIN [None]
  - KERATOCONJUNCTIVITIS SICCA [None]
  - VISION BLURRED [None]
  - VISUAL DISTURBANCE [None]
